FAERS Safety Report 6847816-X (Version None)
Quarter: 2010Q3

REPORT INFORMATION
  Report Type: 
  Country: None (occurrence: None)
  Receive Date: 20100716
  Receipt Date: 20100701
  Transmission Date: 20110219
  Serious: Yes (Hospitalization)
  Sender: FDA-Public Use
  Company Number: JP-SANOFI-AVENTIS-2010SA038530

PATIENT
  Age: 60 Year
  Sex: Female
  Weight: 53.2 kg

DRUGS (5)
  1. CLEXANE [Suspect]
     Indication: ABDOMINAL OPERATION
     Route: 058
     Dates: start: 20100203, end: 20100208
  2. AMLODIPINE BESYLATE [Concomitant]
     Route: 048
     Dates: start: 20091001
  3. LOXONIN [Concomitant]
     Indication: PROCEDURAL PAIN
     Route: 048
     Dates: start: 20100202, end: 20100205
  4. SELBEX [Concomitant]
     Indication: POSTOPERATIVE CARE
     Route: 048
     Dates: start: 20100202, end: 20100205
  5. CEFMETAZON [Concomitant]
     Route: 051
     Dates: start: 20100201, end: 20100202

REACTIONS (7)
  - ALANINE AMINOTRANSFERASE INCREASED [None]
  - ASPARTATE AMINOTRANSFERASE INCREASED [None]
  - BLOOD ALKALINE PHOSPHATASE INCREASED [None]
  - BLOOD LACTATE DEHYDROGENASE INCREASED [None]
  - GAMMA-GLUTAMYLTRANSFERASE INCREASED [None]
  - HEPATIC ENZYME INCREASED [None]
  - HEPATIC FUNCTION ABNORMAL [None]
